FAERS Safety Report 21834479 (Version 2)
Quarter: 2023Q4

REPORT INFORMATION
  Report Type: Spontaneous
  Country: US (occurrence: None)
  Receive Date: 20230108
  Receipt Date: 20231219
  Transmission Date: 20240109
  Serious: No
  Sender: FDA-Public Use
  Company Number: US-ROCHE-3205710

PATIENT
  Age: 9 Year
  Sex: Male

DRUGS (2)
  1. HEMLIBRA [Suspect]
     Active Substance: EMICIZUMAB-KXWH
     Indication: Factor VIII deficiency
     Dosage: 60 MG/0.4 ML
     Route: 058
     Dates: start: 202205
  2. HEMLIBRA [Suspect]
     Active Substance: EMICIZUMAB-KXWH
     Dosage: STRENGTH-105MG/0.7ML
     Route: 058
     Dates: start: 201810

REACTIONS (1)
  - Testicular haemorrhage [Unknown]

NARRATIVE: CASE EVENT DATE: 20220926
